FAERS Safety Report 8996310 (Version 1)
Quarter: 2013Q1

REPORT INFORMATION
  Report Type: Spontaneous
  Country: US (occurrence: US)
  Receive Date: 20130103
  Receipt Date: 20130103
  Transmission Date: 20140127
  Serious: Yes (Other)
  Sender: FDA-Public Use
  Company Number: US-BRISTOL-MYERS SQUIBB COMPANY-17126897

PATIENT
  Age: 51 Year
  Sex: Male

DRUGS (1)
  1. PRAVASTATIN SODIUM [Suspect]

REACTIONS (3)
  - Renal failure [Recovering/Resolving]
  - Muscle spasms [Recovering/Resolving]
  - Hyperhidrosis [Not Recovered/Not Resolved]
